FAERS Safety Report 19586621 (Version 1)
Quarter: 2021Q3

REPORT INFORMATION
  Report Type: Spontaneous
  Country: FR (occurrence: FR)
  Receive Date: 20210720
  Receipt Date: 20210720
  Transmission Date: 20211014
  Serious: Yes (Hospitalization)
  Sender: FDA-Public Use
  Company Number: FR-009507513-2107FRA004481

PATIENT
  Age: 46 Year
  Sex: Female
  Weight: 39.1 kg

DRUGS (14)
  1. TARDYFERON [Concomitant]
     Active Substance: FERROUS SULFATE
     Indication: VITAMIN SUPPLEMENTATION
     Dosage: 2 DOSAGE FORM, QD, LONG TERM
     Route: 048
  2. TIENAM 500MG/500MG, POUDRE POUR PERFUSION [Suspect]
     Active Substance: CILASTATIN SODIUM\IMIPENEM
     Indication: MYCOBACTERIAL INFECTION
     Dosage: 3 GRAM, QD (1 G 3X/DAY)
     Route: 042
     Dates: start: 20210503
  3. VENTOLINE [SALBUTAMOL SULFATE] [Concomitant]
     Active Substance: ALBUTEROL SULFATE
     Indication: CYSTIC FIBROSIS
     Dosage: 2 DOSAGE FORM, QD, STRENGTH: 2.5 MG/2.5 ML; SOLUTION FOR INHALATION BY NEBULIZER IN CONTAINER UNIDOS
     Route: 055
  4. CREON [Concomitant]
     Active Substance: PANCRELIPASE AMYLASE\PANCRELIPASE LIPASE\PANCRELIPASE PROTEASE
     Indication: CYSTIC FIBROSIS
     Dosage: 5 DOSAGE FORM, QD, GASTRO?RESISTANT GRANULES IN CAPSULE, LONG TERM
     Route: 048
  5. AMIKACIN. [Suspect]
     Active Substance: AMIKACIN
     Indication: MYCOBACTERIAL INFECTION
     Dosage: 1 GRAM, QD (1 G/DAY)
     Route: 042
     Dates: start: 20210503
  6. LAMPRENE [Suspect]
     Active Substance: CLOFAZIMINE
     Indication: MYCOBACTERIAL INFECTION
     Dosage: 1 DOSAGE FORM, QD, 50MG/DAY
     Route: 048
     Dates: start: 20210503
  7. INEXIUM [ESOMEPRAZOLE MAGNESIUM] [Concomitant]
     Active Substance: ESOMEPRAZOLE MAGNESIUM
     Indication: GASTRITIS PROPHYLAXIS
     Dosage: 40 MILLIGRAM, QD, LONG TERM
     Route: 048
  8. AZITHROMYCINE [Suspect]
     Active Substance: AZITHROMYCIN
     Indication: MYCOBACTERIAL INFECTION
     Dosage: 250 MILLIGRAM, QD (250 MG/DAY)
     Route: 048
     Dates: start: 20210503
  9. FUNGIZONE [Concomitant]
     Active Substance: AMPHOTERICIN B
     Indication: ANTIFUNGAL PROPHYLAXIS
     Dosage: 3 DOSAGE FORM, QD, LONG TERM: 3 MOUTHWASH / DAY
     Route: 048
  10. A 313 [Concomitant]
     Active Substance: RETINOL
     Indication: VITAMIN SUPPLEMENTATION
     Dosage: 2 DOSAGE FORM, QW, LONG TERM
     Route: 048
  11. INNOVAIR [Concomitant]
     Active Substance: BECLOMETHASONE DIPROPIONATE\FORMOTEROL
     Indication: CYSTIC FIBROSIS
     Dosage: 4 DOSAGE FORM, QD, STRENGTH: 200/6 MICROGRAMS/DOSE, SOLUTION FOR INHALATION IN PRESSURIZED BOTTLE, L
     Route: 055
  12. LINEZOLIDE [Suspect]
     Active Substance: LINEZOLID
     Indication: MYCOBACTERIAL INFECTION
     Dosage: 600 MILLIGRAM, QD (600 MG/DAY)
     Route: 048
     Dates: start: 20210503
  13. UVEDOSE [Concomitant]
     Active Substance: CHOLECALCIFEROL
     Indication: VITAMIN D DEFICIENCY
     Dosage: LONG TERM
  14. PULMOZYME [Concomitant]
     Active Substance: DORNASE ALFA
     Indication: CYSTIC FIBROSIS
     Dosage: 1 DOSAGE FORM, QD, STRENGTH: 2500 U/2.5 ML, SOLUTION FOR INHALATION BY NEBULIZER IN VIAL, LONG TERM
     Route: 055

REACTIONS (1)
  - Cardiac failure acute [Recovering/Resolving]

NARRATIVE: CASE EVENT DATE: 20210530
